FAERS Safety Report 9843576 (Version 1)
Quarter: 2013Q4

REPORT INFORMATION
  Report Type: Spontaneous
  Country: US (occurrence: None)
  Receive Date: 20131219
  Receipt Date: 20131219
  Transmission Date: 20140711
  Serious: Yes (Hospitalization)
  Sender: FDA-Public Use
  Company Number: 163-20785-13032258

PATIENT
  Age: 69 Year
  Sex: Female

DRUGS (2)
  1. THALOMID (THALIDOMIDE) (CAPSULES) [Suspect]
     Indication: PLASMA CELL MYELOMA
     Dosage: INTERRUPTED
     Route: 048
     Dates: start: 20110622
  2. PREMARIN (ESTROGENS CONJUGATED) [Concomitant]

REACTIONS (1)
  - Malaise [None]
